FAERS Safety Report 24946599 (Version 1)
Quarter: 2025Q1

REPORT INFORMATION
  Report Type: Spontaneous
  Country: JP (occurrence: JP)
  Receive Date: 20250210
  Receipt Date: 20250210
  Transmission Date: 20250408
  Serious: Yes (Hospitalization)
  Sender: STRIDES
  Company Number: None

PATIENT
  Age: 63 Year
  Sex: Female
  Weight: 47 kg

DRUGS (16)
  1. PREDNISOLONE [Suspect]
     Active Substance: PREDNISOLONE
     Indication: Toxic epidermal necrolysis
     Route: 048
  2. PREDNISOLONE [Suspect]
     Active Substance: PREDNISOLONE
     Route: 065
  3. PREDNISOLONE [Suspect]
     Active Substance: PREDNISOLONE
     Route: 048
  4. PREDNISOLONE [Suspect]
     Active Substance: PREDNISOLONE
     Route: 065
  5. PREDNISOLONE [Suspect]
     Active Substance: PREDNISOLONE
     Route: 065
  6. METHYLPREDNISOLONE [Suspect]
     Active Substance: METHYLPREDNISOLONE
     Indication: Toxic epidermal necrolysis
     Route: 065
  7. ACETAZOLAMIDE [Concomitant]
     Active Substance: ACETAZOLAMIDE
     Indication: Product used for unknown indication
     Route: 048
  8. SODIUM BICARBONATE [Concomitant]
     Active Substance: SODIUM BICARBONATE
     Indication: Product used for unknown indication
     Route: 048
  9. AZOSEMIDE [Concomitant]
     Active Substance: AZOSEMIDE
     Indication: Product used for unknown indication
     Route: 048
  10. TETRAFERRIC TRICITRATE DECAHYDRATE [Concomitant]
     Active Substance: TETRAFERRIC TRICITRATE DECAHYDRATE
     Indication: Product used for unknown indication
     Route: 048
  11. TOLVAPTAN [Concomitant]
     Active Substance: TOLVAPTAN
     Indication: Product used for unknown indication
     Route: 048
  12. CARVEDILOL [Concomitant]
     Active Substance: CARVEDILOL
     Indication: Product used for unknown indication
     Route: 048
  13. LINAGLIPTIN [Concomitant]
     Active Substance: LINAGLIPTIN
     Indication: Diabetes mellitus
     Route: 048
  14. ATORVASTATIN [Concomitant]
     Active Substance: ATORVASTATIN
     Indication: Product used for unknown indication
     Route: 048
  15. NALFURAFINE [Concomitant]
     Active Substance: NALFURAFINE
     Indication: Product used for unknown indication
     Route: 048
  16. AZILSARTAN KAMEDOXOMIL [Concomitant]
     Active Substance: AZILSARTAN KAMEDOXOMIL
     Indication: Product used for unknown indication
     Route: 048

REACTIONS (5)
  - Ascites [Recovered/Resolved]
  - Pleural effusion [Recovered/Resolved]
  - Pneumonia [Recovered/Resolved]
  - Disseminated cryptococcosis [Recovered/Resolved]
  - Cryptococcal meningoencephalitis [Recovered/Resolved]
